FAERS Safety Report 16177496 (Version 1)
Quarter: 2019Q2

REPORT INFORMATION
  Report Type: Spontaneous
  Country: US (occurrence: US)
  Receive Date: 20190410
  Receipt Date: 20190410
  Transmission Date: 20190711
  Serious: No
  Sender: FDA-Public Use
  Company Number: US-SHIRE-US201911827

PATIENT
  Sex: Female

DRUGS (1)
  1. XIIDRA [Suspect]
     Active Substance: LIFITEGRAST
     Indication: PRODUCT USED FOR UNKNOWN INDICATION
     Dosage: UNK UNK, 2X/DAY:BID
     Route: 047
     Dates: start: 20190405, end: 20190406

REACTIONS (3)
  - Instillation site erythema [Unknown]
  - Instillation site pain [Unknown]
  - Headache [Unknown]
